FAERS Safety Report 22361369 (Version 8)
Quarter: 2024Q1

REPORT INFORMATION
  Report Type: Report from Study
  Country: US (occurrence: US)
  Receive Date: 20230524
  Receipt Date: 20240331
  Transmission Date: 20240410
  Serious: Yes (Hospitalization, Other)
  Sender: FDA-Public Use
  Company Number: US-TAKEDA-2023TUS037085

PATIENT
  Sex: Female
  Weight: 46 kg

DRUGS (4)
  1. MOBOCERTINIB [Suspect]
     Active Substance: MOBOCERTINIB
     Indication: Lung neoplasm malignant
     Dosage: 160 MILLIGRAM, QD
     Route: 048
  2. MOBOCERTINIB [Suspect]
     Active Substance: MOBOCERTINIB
     Dosage: 120 MILLIGRAM, QD
     Route: 048
     Dates: start: 20230427
  3. MOBOCERTINIB [Suspect]
     Active Substance: MOBOCERTINIB
     Dosage: 160 MILLIGRAM, QD
     Route: 048
  4. MOBOCERTINIB [Suspect]
     Active Substance: MOBOCERTINIB
     Dosage: 160 MILLIGRAM, QD
     Route: 048
     Dates: start: 20230427

REACTIONS (23)
  - Cerebrovascular accident [Unknown]
  - Deafness [Unknown]
  - Cataract [Unknown]
  - Renal impairment [Unknown]
  - Eye irritation [Unknown]
  - Ocular hyperaemia [Unknown]
  - COVID-19 [Unknown]
  - Insomnia [Unknown]
  - Brain fog [Unknown]
  - Visual impairment [Unknown]
  - Staphylococcal infection [Unknown]
  - Eye infection [Unknown]
  - Skin infection [Unknown]
  - Skin weeping [Unknown]
  - Skin disorder [Unknown]
  - Pain [Unknown]
  - Acne [Unknown]
  - Asthenia [Unknown]
  - Rash [Unknown]
  - Nail disorder [Unknown]
  - Rash pruritic [Unknown]
  - Diarrhoea [Unknown]
  - Drug ineffective [Unknown]
